APPROVED DRUG PRODUCT: ANDROID 25
Active Ingredient: METHYLTESTOSTERONE
Strength: 25MG
Dosage Form/Route: TABLET;ORAL
Application: A087147 | Product #001
Applicant: BAUSCH HEALTH US LLC
Approved: Approved Prior to Jan 1, 1982 | RLD: No | RS: No | Type: DISCN